FAERS Safety Report 23366897 (Version 1)
Quarter: 2024Q1

REPORT INFORMATION
  Report Type: Spontaneous
  Country: US (occurrence: None)
  Receive Date: 20240104
  Receipt Date: 20240104
  Transmission Date: 20240410
  Serious: Yes (Hospitalization)
  Sender: FDA-Public Use
  Company Number: None

PATIENT
  Age: 13 Year
  Sex: Female
  Weight: 45.5 kg

DRUGS (7)
  1. DEXAMETHASONE [Suspect]
     Active Substance: DEXAMETHASONE
  2. ZINECARD [Suspect]
     Active Substance: DEXRAZOXANE HYDROCHLORIDE
  3. DOXORUBICIN HYDROCHLORIDE [Suspect]
     Active Substance: DOXORUBICIN HYDROCHLORIDE
  4. METHOTREXATE [Suspect]
     Active Substance: METHOTREXATE
  5. ONCASPAR [Suspect]
     Active Substance: PEGASPARGASE
  6. GLEEVEC [Suspect]
     Active Substance: IMATINIB MESYLATE
  7. VINCRISTINE [Suspect]
     Active Substance: VINCRISTINE

REACTIONS (3)
  - Syncope [None]
  - Escherichia bacteraemia [None]
  - Neutropenia [None]

NARRATIVE: CASE EVENT DATE: 20231222
